FAERS Safety Report 10192936 (Version 1)
Quarter: 2014Q2

REPORT INFORMATION
  Report Type: Spontaneous
  Country: CA (occurrence: CA)
  Receive Date: 20140523
  Receipt Date: 20140523
  Transmission Date: 20141212
  Serious: Yes (Other)
  Sender: FDA-Public Use
  Company Number: CA-009507513-1405CAN008314

PATIENT
  Age: 5 Year
  Sex: Male

DRUGS (4)
  1. ZENHALE [Suspect]
     Dosage: 200.0, BID
     Route: 065
  2. AVAMYS [Suspect]
     Dosage: 27.5 MG, QD
     Route: 065
  3. SINGULAIR [Concomitant]
     Route: 065
  4. VENTOLIN (ALBUTEROL SULFATE) [Concomitant]
     Route: 065

REACTIONS (2)
  - Fatigue [Recovered/Resolved]
  - Blood cortisol decreased [Recovered/Resolved]
